FAERS Safety Report 4295973-4 (Version None)
Quarter: 2004Q1

REPORT INFORMATION
  Report Type: 
  Country: None (occurrence: None)
  Receive Date: 20040212
  Receipt Date: 20040201
  Transmission Date: 20041129
  Serious: Yes (Death)
  Sender: FDA-Public Use
  Company Number: JACGBR2000000929

PATIENT
  Age: 4 Month
  Sex: Male

DRUGS (1)
  1. PREPULSID (CISAPRIDE) UNSPECIFIED [Suspect]
     Indication: DRUG USE FOR UNKNOWN INDICATION

REACTIONS (1)
  - DEATH [None]
